FAERS Safety Report 7259611-0 (Version None)
Quarter: 2011Q1

REPORT INFORMATION
  Report Type: 
  Country: None (occurrence: None)
  Receive Date: 20110130
  Receipt Date: 20101001
  Transmission Date: 20110831
  Serious: No
  Sender: FDA-Public Use
  Company Number: US-ABBOTT-10P-163-0663810-00

PATIENT
  Sex: Female
  Weight: 63.56 kg

DRUGS (5)
  1. IRON [Concomitant]
     Indication: ANAEMIA
  2. PENTASA [Concomitant]
     Indication: CROHN'S DISEASE
  3. METHOTREXATE [Concomitant]
     Indication: CROHN'S DISEASE
  4. HUMIRA [Suspect]
     Indication: CROHN'S DISEASE
     Dosage: CROHNS DISEASE LOADING DOSE
     Dates: start: 20100811
  5. FOLIC ACID [Concomitant]
     Indication: VITAMIN SUPPLEMENTATION

REACTIONS (3)
  - INJECTION SITE HAEMATOMA [None]
  - INJECTION SITE PAIN [None]
  - DEVICE MALFUNCTION [None]
